FAERS Safety Report 13105229 (Version 1)
Quarter: 2017Q1

REPORT INFORMATION
  Report Type: Spontaneous
  Country: US (occurrence: US)
  Receive Date: 20170111
  Receipt Date: 20170111
  Transmission Date: 20170428
  Serious: Yes (Other)
  Sender: FDA-Public Use
  Company Number: US-SA-2015SA189291

PATIENT
  Age: 69 Year
  Sex: Female

DRUGS (1)
  1. GOLD BOND ULTIMATE DARK SPOT MINIMIZING BODY CREAM [Suspect]
     Active Substance: COSMETICS
     Indication: SKIN DISCOLOURATION
     Route: 065
     Dates: start: 201510

REACTIONS (2)
  - Skin cancer [Not Recovered/Not Resolved]
  - Drug ineffective [Unknown]

NARRATIVE: CASE EVENT DATE: 20160610
